FAERS Safety Report 19202028 (Version 1)
Quarter: 2021Q2

REPORT INFORMATION
  Report Type: Spontaneous
  Country: US (occurrence: US)
  Receive Date: 20210430
  Receipt Date: 20210430
  Transmission Date: 20210717
  Serious: Yes (Other)
  Sender: FDA-Public Use
  Company Number: US-TAKEDA-2021TUS025728

PATIENT

DRUGS (2)
  1. VONVENDI [Suspect]
     Active Substance: VON WILLEBRAND FACTOR (RECOMBINANT)
     Indication: HAEMORRHAGE
     Dosage: 3 DOSAGE FORM, Q8HR
     Route: 065
  2. VONVENDI [Suspect]
     Active Substance: VON WILLEBRAND FACTOR (RECOMBINANT)
     Dosage: 3 DOSAGE FORM, Q8HR
     Route: 065

REACTIONS (6)
  - Product dose omission issue [Unknown]
  - Haemorrhage [Not Recovered/Not Resolved]
  - Complication associated with device [Unknown]
  - Product deposit [Unknown]
  - Haematoma [Unknown]
  - Cardiac pacemaker insertion [Unknown]

NARRATIVE: CASE EVENT DATE: 20210419
